FAERS Safety Report 4746371-8 (Version None)
Quarter: 2005Q3

REPORT INFORMATION
  Report Type: 
  Country: None (occurrence: None)
  Receive Date: 20050815
  Receipt Date: 20050803
  Transmission Date: 20060218
  Serious: Yes (Other)
  Sender: FDA-Public Use
  Company Number: 2005-08-0218

PATIENT
  Age: 63 Year
  Sex: Male

DRUGS (11)
  1. INTERFERON ALFA-2B INJECTABLE [Suspect]
     Indication: HEPATITIS B
     Dosage: SEE IMAGE
     Dates: start: 19930101, end: 19940101
  2. INTERFERON ALFA-2B INJECTABLE [Suspect]
     Indication: HEPATITIS C
     Dosage: SEE IMAGE
     Dates: start: 19930101, end: 19940101
  3. INTERFERON ALFA-2B INJECTABLE [Suspect]
     Indication: HEPATITIS B
     Dosage: SEE IMAGE
     Dates: start: 19970101, end: 19970101
  4. INTERFERON ALFA-2B INJECTABLE [Suspect]
     Indication: HEPATITIS C
     Dosage: SEE IMAGE
     Dates: start: 19970101, end: 19970101
  5. INTERFERON ALFA-2B INJECTABLE [Suspect]
     Indication: HEPATITIS B
     Dosage: SEE IMAGE
     Dates: start: 19930101, end: 19980101
  6. INTERFERON ALFA-2B INJECTABLE [Suspect]
     Indication: HEPATITIS C
     Dosage: SEE IMAGE
     Dates: start: 19930101, end: 19980101
  7. INTERFERON ALFA-2B INJECTABLE [Suspect]
     Indication: HEPATITIS B
     Dosage: SEE IMAGE
     Dates: start: 19970101, end: 19980101
  8. INTERFERON ALFA-2B INJECTABLE [Suspect]
     Indication: HEPATITIS C
     Dosage: SEE IMAGE
     Dates: start: 19970101, end: 19980101
  9. RIBAVIRIN [Suspect]
     Indication: HEPATITIS B
     Dosage: 1200 MG QD ORAL
     Route: 048
     Dates: start: 19970101, end: 19980101
  10. RIBAVIRIN [Suspect]
     Indication: HEPATITIS C
     Dosage: 1200 MG QD ORAL
     Route: 048
     Dates: start: 19970101, end: 19980101
  11. INTERFERON [Suspect]
     Indication: HEPATITIS C
     Dosage: 3 MU TIW
     Dates: start: 19940101, end: 19940101

REACTIONS (3)
  - DISEASE RECURRENCE [None]
  - HEPATITIS [None]
  - HEPATITIS C ANTIBODY POSITIVE [None]
